FAERS Safety Report 9827344 (Version 3)
Quarter: 2014Q1

REPORT INFORMATION
  Report Type: Report from Study
  Country: JP (occurrence: JP)
  Receive Date: 20140117
  Receipt Date: 20140325
  Transmission Date: 20141002
  Serious: Yes (Death, Life-Threatening, Hospitalization)
  Sender: FDA-Public Use
  Company Number: JP-SA-2014SA005928

PATIENT
  Age: 59 Year
  Sex: Female
  Weight: 41 kg

DRUGS (11)
  1. THYMOGLOBULINE [Suspect]
     Indication: ACUTE GRAFT VERSUS HOST DISEASE
     Route: 042
     Dates: start: 20120925, end: 20120925
  2. THYMOGLOBULINE [Suspect]
     Indication: ACUTE GRAFT VERSUS HOST DISEASE
     Route: 042
     Dates: start: 20120926, end: 20120926
  3. CORTICOSTEROID NOS [Concomitant]
     Indication: ACUTE GRAFT VERSUS HOST DISEASE
     Dates: start: 20120912, end: 20121007
  4. ETANERCEPT [Concomitant]
     Indication: ACUTE GRAFT VERSUS HOST DISEASE
     Dates: start: 20120918, end: 20121007
  5. DIFLUCAN [Concomitant]
     Indication: ANTIFUNGAL PROPHYLAXIS
     Dates: end: 20121005
  6. ALOSITOL [Concomitant]
     Indication: HYPERURICAEMIA
     Dates: end: 20121005
  7. MAGLAX [Concomitant]
     Indication: CONSTIPATION
     Dates: end: 20121005
  8. SOLU-MEDROL [Concomitant]
     Indication: GRAFT VERSUS HOST DISEASE
     Dates: end: 20121005
  9. CELLCEPT [Concomitant]
     Indication: GRAFT VERSUS HOST DISEASE
     Dates: start: 20120903, end: 20121005
  10. GRACEPTOR [Concomitant]
     Indication: GRAFT VERSUS HOST DISEASE
     Dates: start: 20120919, end: 20121005
  11. FUTHAN [Concomitant]
     Indication: PANCREATITIS
     Dates: start: 20120921, end: 20121005

REACTIONS (5)
  - Interstitial lung disease [Fatal]
  - Blood pressure decreased [Recovering/Resolving]
  - Pyrexia [Recovering/Resolving]
  - Hypernatraemia [Not Recovered/Not Resolved]
  - Subcutaneous emphysema [Not Recovered/Not Resolved]
